FAERS Safety Report 18563121 (Version 1)
Quarter: 2020Q4

REPORT INFORMATION
  Report Type: Other
  Country: CA (occurrence: CA)
  Receive Date: 20201130
  Receipt Date: 20201130
  Transmission Date: 20210114
  Serious: Yes (Other)
  Sender: FDA-Public Use
  Company Number: CA-CELLTRION INC.-2020CA032573

PATIENT

DRUGS (11)
  1. RITUXIMAB (UNKNOWN) [Suspect]
     Active Substance: RITUXIMAB
     Indication: PRODUCT USED FOR UNKNOWN INDICATION
     Dosage: 1000 MILLIGRAM
     Route: 042
  2. DICLOFENAC [Concomitant]
     Active Substance: DICLOFENAC
  3. XELJANZ [Concomitant]
     Active Substance: TOFACITINIB CITRATE
  4. TRAMADOL. [Concomitant]
     Active Substance: TRAMADOL
  5. METHOTREXATE. [Suspect]
     Active Substance: METHOTREXATE
     Indication: PRODUCT USED FOR UNKNOWN INDICATION
     Dosage: 12.5 MILLIGRAM 1 EVERY 1 WEEKS
     Route: 065
  6. SULFASALAZINE. [Suspect]
     Active Substance: SULFASALAZINE
     Indication: PRODUCT USED FOR UNKNOWN INDICATION
     Dosage: 500.0 MILLIGRAM 2 EVERY 1 DAYS
     Route: 042
  7. SULFASALAZINE. [Suspect]
     Active Substance: SULFASALAZINE
     Dosage: 500.0 MILLIGRAM 4 EVERY 1 DAYS
     Route: 042
  8. PREDNISONE. [Concomitant]
     Active Substance: PREDNISONE
  9. TYLENOL EXTRA STRENGTH [Concomitant]
     Active Substance: ACETAMINOPHEN
  10. HUMIRA [Suspect]
     Active Substance: ADALIMUMAB
     Indication: PRODUCT USED FOR UNKNOWN INDICATION
     Route: 058
  11. ORENCIA [Suspect]
     Active Substance: ABATACEPT
     Indication: PRODUCT USED FOR UNKNOWN INDICATION
     Route: 042

REACTIONS (6)
  - Therapeutic product effect incomplete [Unknown]
  - Drug intolerance [Unknown]
  - Arthralgia [Unknown]
  - Anaphylactic reaction [Unknown]
  - Swelling [Unknown]
  - Joint swelling [Unknown]
